FAERS Safety Report 5004359-6 (Version None)
Quarter: 2006Q2

REPORT INFORMATION
  Report Type: 
  Country: None (occurrence: None)
  Receive Date: 20060517
  Receipt Date: 20060509
  Transmission Date: 20061013
  Serious: Yes (Other)
  Sender: FDA-Public Use
  Company Number: GB-GLAXOSMITHKLINE-B0423186A

PATIENT
  Age: 73 Year
  Sex: Male
  Weight: 85 kg

DRUGS (2)
  1. AUGMENTIN '125' [Suspect]
     Indication: SINUSITIS
     Dosage: 375MG PER DAY
     Route: 048
     Dates: start: 20060401, end: 20060401
  2. CO-DYDRAMOL [Concomitant]
     Indication: PAIN
     Dosage: 2U AS REQUIRED
     Route: 048

REACTIONS (2)
  - HEPATITIS [None]
  - JAUNDICE [None]
